FAERS Safety Report 10150082 (Version 1)
Quarter: 2014Q2

REPORT INFORMATION
  Report Type: Spontaneous
  Country: US (occurrence: US)
  Receive Date: 20140502
  Receipt Date: 20140502
  Transmission Date: 20141212
  Serious: No
  Sender: FDA-Public Use
  Company Number: US-009507513-1405USA000370

PATIENT
  Age: 22 Year
  Sex: Female
  Weight: 69.39 kg

DRUGS (1)
  1. NEXPLANON [Suspect]
     Dosage: UNK
     Route: 059
     Dates: start: 20130703

REACTIONS (3)
  - Vulvovaginal dryness [Not Recovered/Not Resolved]
  - Libido decreased [Not Recovered/Not Resolved]
  - Vaginal haemorrhage [Not Recovered/Not Resolved]
